FAERS Safety Report 17521810 (Version 1)
Quarter: 2020Q1

REPORT INFORMATION
  Report Type: Spontaneous
  Country: FR (occurrence: FR)
  Receive Date: 20200310
  Receipt Date: 20200310
  Transmission Date: 20200409
  Serious: Yes (Hospitalization)
  Sender: FDA-Public Use
  Company Number: FR-PFIZER INC-2020099033

PATIENT
  Age: 14 Year
  Sex: Female

DRUGS (1)
  1. XANAX [Suspect]
     Active Substance: ALPRAZOLAM
     Dosage: UNK
     Route: 048

REACTIONS (5)
  - Disturbance in attention [Recovered/Resolved]
  - Drug abuse [Recovered/Resolved]
  - Product use issue [Unknown]
  - Mydriasis [Recovered/Resolved]
  - Off label use [Unknown]
